FAERS Safety Report 21822098 (Version 2)
Quarter: 2023Q1

REPORT INFORMATION
  Report Type: Spontaneous
  Country: US (occurrence: US)
  Receive Date: 20230105
  Receipt Date: 20230110
  Transmission Date: 20230418
  Serious: Yes (Hospitalization, Other)
  Sender: FDA-Public Use
  Company Number: US-PFIZER INC-202300003123

PATIENT
  Age: 76 Year
  Sex: Female

DRUGS (7)
  1. AMIODARONE HYDROCHLORIDE [Suspect]
     Active Substance: AMIODARONE HYDROCHLORIDE
     Indication: Atrial flutter
     Dosage: LOW-DOSE
  2. AMIODARONE HYDROCHLORIDE [Suspect]
     Active Substance: AMIODARONE HYDROCHLORIDE
     Dosage: 100 MG, DAILY
  3. METOPROLOL [Concomitant]
     Active Substance: METOPROLOL
     Dosage: UNK
  4. ROSUVASTATIN [Concomitant]
     Active Substance: ROSUVASTATIN
     Dosage: UNK
  5. LOSARTAN [Concomitant]
     Active Substance: LOSARTAN
     Dosage: UNK
  6. TORSEMIDE [Concomitant]
     Active Substance: TORSEMIDE
     Dosage: UNK
  7. RIVAROXABAN [Concomitant]
     Active Substance: RIVAROXABAN
     Dosage: UNK

REACTIONS (1)
  - Drug-induced liver injury [Unknown]
